FAERS Safety Report 16161834 (Version 3)
Quarter: 2019Q2

REPORT INFORMATION
  Report Type: Spontaneous
  Country: US (occurrence: US)
  Receive Date: 20190405
  Receipt Date: 20190502
  Transmission Date: 20190711
  Serious: No
  Sender: FDA-Public Use
  Company Number: US-GLAXOSMITHKLINE-US2019058750

PATIENT
  Sex: Female

DRUGS (2)
  1. ABREVA [Suspect]
     Active Substance: DOCOSANOL
     Indication: ORAL HERPES
     Dosage: UNK, FOR 2 DAYS
  2. ABREVA [Suspect]
     Active Substance: DOCOSANOL
     Dosage: UNK, FOR 2 DAYS

REACTIONS (3)
  - Incorrect product administration duration [Unknown]
  - Product complaint [Unknown]
  - Circumstance or information capable of leading to medication error [Unknown]
